FAERS Safety Report 4620599-X (Version None)
Quarter: 2005Q1

REPORT INFORMATION
  Report Type: 
  Country: None (occurrence: None)
  Receive Date: 20050324
  Receipt Date: 20050311
  Transmission Date: 20050727
  Serious: Yes (Hospitalization, Other)
  Sender: FDA-Public Use
  Company Number: 2005044287

PATIENT
  Age: 34 Year
  Sex: Male
  Weight: 132.4503 kg

DRUGS (12)
  1. GEODON [Suspect]
     Indication: BIPOLAR DISORDER
     Dosage: 160 MG (80 MG, 2 IN 1 D), ORAL
     Route: 048
     Dates: end: 20050101
  2. PANTOPRAZOLE SODIUM [Concomitant]
  3. LEVOFLOXACIN [Concomitant]
  4. LEVOTHYROXINE SODIUM [Concomitant]
  5. ATORVASTATIN CALCIUM [Concomitant]
  6. CLONIDINE [Concomitant]
  7. THIAMINE [Concomitant]
  8. PAROXETINE HYDROCHLORIDE [Concomitant]
  9. OXCARBAZEPINE [Concomitant]
  10. MULTIPLE VITAMINS (ASCORBIC ACID, ERGOCALCIFEROL, FOLIC ACID, RETINOL, [Concomitant]
  11. LORATADINE [Concomitant]
  12. FOLIC ACID [Concomitant]

REACTIONS (3)
  - BLOOD PROLACTIN INCREASED [None]
  - BLOOD THYROID STIMULATING HORMONE INCREASED [None]
  - OVERDOSE [None]
